FAERS Safety Report 4022687 (Version 2)
Quarter: 2014Q2

REPORT INFORMATION
  Report Type: Spontaneous
  Country: DE (occurrence: DE)
  Receive Date: 20031106
  Receipt Date: 20140407
  Transmission Date: 20141212
  Serious: Yes (Hospitalization, Disabling, Congenital Anomaly)
  Sender: FDA-Public Use
  Company Number: DE-GLAXOSMITHKLINE-D0041775A

PATIENT
  Age: 21 Year
  Sex: Female
  Weight: 55 kg

DRUGS (2)
  1. VALTREX [Suspect]
     Indication: VARICELLA
     Dosage: 2TAB THREE TIMES PER DAY
     Route: 048
     Dates: start: 20030401, end: 20030407
  2. NEXIUM [Suspect]
     Indication: GASTRITIS
     Dosage: 40MG PER DAY
     Route: 065
     Dates: start: 20030401, end: 20030430

REACTIONS (14)
  - Panic attack [Recovered/Resolved]
  - Illusion [Recovering/Resolving]
  - Mucous membrane disorder [Recovered/Resolved]
  - Vulvitis [Unknown]
  - Dry eye [Unknown]
  - Sensory disturbance [Unknown]
  - Hyperacusis [Unknown]
  - Mucosal inflammation [Unknown]
  - Suicidal ideation [Unknown]
  - Mucosal inflammation [Unknown]
  - Drug interaction [Unknown]
  - Trisomy 17 [Unknown]
  - Trisomy 18 [Unknown]
  - Maternal exposure before pregnancy [Unknown]
